FAERS Safety Report 18252130 (Version 1)
Quarter: 2020Q3

REPORT INFORMATION
  Report Type: Spontaneous
  Country: US (occurrence: US)
  Receive Date: 20200910
  Receipt Date: 20200910
  Transmission Date: 20201103
  Serious: Yes (Disabling)
  Sender: FDA-Public Use
  Company Number: None

PATIENT
  Age: 67 Year
  Sex: Female
  Weight: 68.4 kg

DRUGS (9)
  1. NATURE?THROID [Suspect]
     Active Substance: THYROID, PORCINE
     Indication: HYPOTHYROIDISM
     Dosage: ?          QUANTITY:2 TABLET(S);?
     Route: 048
     Dates: start: 19900601, end: 20200907
  2. LEVOTHYROXINE. [Suspect]
     Active Substance: LEVOTHYROXINE
  3. CALCIUM MULTIMINERAL [Concomitant]
  4. VITAMIN C [Concomitant]
     Active Substance: ASCORBIC ACID
  5. VITAMIN E [Concomitant]
     Active Substance: .ALPHA.-TOCOPHEROL
  6. COLLAGEN [Concomitant]
     Active Substance: COLLAGEN
  7. VIT D [Concomitant]
     Active Substance: VITAMIN D NOS
  8. MSM [Concomitant]
     Active Substance: DIMETHYL SULFONE
  9. VIT B [Concomitant]
     Active Substance: VITAMIN B

REACTIONS (3)
  - Thyroxine free decreased [None]
  - Weight increased [None]
  - Recalled product administered [None]

NARRATIVE: CASE EVENT DATE: 20181101
